FAERS Safety Report 7932844-3 (Version None)
Quarter: 2011Q4

REPORT INFORMATION
  Report Type: 
  Country: None (occurrence: None)
  Receive Date: 20111122
  Receipt Date: 20111117
  Transmission Date: 20120403
  Serious: Yes (Other)
  Sender: FDA-Public Use
  Company Number: CA-PFIZER INC-2011281948

PATIENT
  Sex: Female

DRUGS (1)
  1. LYRICA [Suspect]
     Indication: SPINAL COLUMN STENOSIS
     Dosage: 2X 50 MG, 2X/DAY
     Dates: start: 20110201, end: 20110401

REACTIONS (3)
  - ENAMEL ANOMALY [None]
  - LOOSE TOOTH [None]
  - TOOTH DISCOLOURATION [None]
